FAERS Safety Report 10535407 (Version 2)
Quarter: 2014Q4

REPORT INFORMATION
  Report Type: Spontaneous
  Country: BE (occurrence: BE)
  Receive Date: 20141022
  Receipt Date: 20141030
  Transmission Date: 20150529
  Serious: Yes (Hospitalization, Other)
  Sender: FDA-Public Use
  Company Number: BE-TAKEDA-2014TUS010315

PATIENT
  Age: 79 Year
  Sex: Female

DRUGS (7)
  1. CRESTOR [Concomitant]
     Active Substance: ROSUVASTATIN CALCIUM
     Dosage: UNK
  2. ASAFLOW [Concomitant]
     Active Substance: ASPIRIN
     Dosage: UNK
  3. ADENURIC [Suspect]
     Active Substance: FEBUXOSTAT
     Indication: BLOOD URIC ACID INCREASED
     Dosage: 80 MG, QD
     Route: 065
     Dates: start: 20141009, end: 20141011
  4. L-THYROXINE                        /00068001/ [Concomitant]
     Dosage: UNK
  5. HYPAN [Concomitant]
     Active Substance: NIFEDIPINE
     Dosage: UNK
  6. OSTEOPLUS                          /00944201/ [Concomitant]
     Indication: OSTEOPOROSIS
     Dosage: UNK
  7. ATENOLOL. [Concomitant]
     Active Substance: ATENOLOL
     Dosage: UNK

REACTIONS (4)
  - Anaphylactic shock [Recovered/Resolved]
  - Syncope [Recovered/Resolved]
  - Urticaria [Recovered/Resolved]
  - Angioedema [Recovered/Resolved]

NARRATIVE: CASE EVENT DATE: 20141011
